FAERS Safety Report 5449652-8 (Version None)
Quarter: 2007Q3

REPORT INFORMATION
  Report Type: 
  Country: None (occurrence: None)
  Receive Date: 20070910
  Receipt Date: 20070829
  Transmission Date: 20080115
  Serious: Yes (Hospitalization)
  Sender: FDA-Public Use
  Company Number: CHNY2007DE02960

PATIENT
  Age: 52 Year
  Sex: Male

DRUGS (4)
  1. ACETYLSALICYLIC ACID (NCH)(ACETYLSALICYLIC ACID) UNKNOWN [Suspect]
  2. HMG COA REDUCTASE INHIBITORS(NO INGREDIENTS/SUBSTANCES) [Suspect]
  3. ANGIOTENSIN CONVERTING ENZYME BLOCKERS(NO INGREDIENTS/SUBSTANCES) [Suspect]
  4. BETA BLOCKING AGENTS(NO INGREDIENT/SUBSTANCES) [Suspect]

REACTIONS (4)
  - ANGINA PECTORIS [None]
  - CORONARY ARTERY RESTENOSIS [None]
  - ELECTROCARDIOGRAM ST SEGMENT DEPRESSION [None]
  - IN-STENT ARTERIAL RESTENOSIS [None]
